FAERS Safety Report 8341605 (Version 45)
Quarter: 2016Q4

REPORT INFORMATION
  Report Type: Report from Study
  Country: CA (occurrence: CA)
  Receive Date: 20120118
  Receipt Date: 20161019
  Transmission Date: 20170207
  Serious: Yes (Death, Hospitalization, Other)
  Sender: FDA-Public Use
  Company Number: PHHY2012CA002872

PATIENT
  Age: 85 Year
  Sex: Female
  Weight: 57 kg

DRUGS (8)
  1. ALPRAZOLAM. [Concomitant]
     Active Substance: ALPRAZOLAM
     Indication: PRODUCT USED FOR UNKNOWN INDICATION
     Dosage: 0.25 MG, QD
     Route: 065
  2. MICARDIS [Concomitant]
     Active Substance: TELMISARTAN
     Indication: PRODUCT USED FOR UNKNOWN INDICATION
     Route: 065
  3. WARFARIN [Concomitant]
     Active Substance: WARFARIN
     Indication: PRODUCT USED FOR UNKNOWN INDICATION
     Route: 065
  4. RAMIPRIL. [Concomitant]
     Active Substance: RAMIPRIL
     Indication: PRODUCT USED FOR UNKNOWN INDICATION
     Route: 065
  5. VITAMINS NOS [Concomitant]
     Active Substance: VITAMINS
     Indication: PRODUCT USED FOR UNKNOWN INDICATION
     Route: 048
  6. FRAGMIN [Concomitant]
     Active Substance: DALTEPARIN SODIUM
     Indication: PRODUCT USED FOR UNKNOWN INDICATION
     Route: 065
  7. SANDOSTATIN [Suspect]
     Active Substance: OCTREOTIDE ACETATE
     Indication: CARCINOID TUMOUR
     Dosage: 50 UG, ONCE/SINGLE (TEST DOSE)
     Route: 058
     Dates: start: 20090521, end: 20090521
  8. SANDOSTATIN LAR DEPOT [Suspect]
     Active Substance: OCTREOTIDE ACETATE
     Indication: CARCINOID TUMOUR
     Dosage: 30 MG, QMO (EVERY 4 WEEKS)
     Route: 030
     Dates: start: 20090601, end: 20160622

REACTIONS (51)
  - Malignant neoplasm progression [Unknown]
  - Anxiety [Recovering/Resolving]
  - General physical health deterioration [Unknown]
  - Heart rate decreased [Unknown]
  - Fatigue [Unknown]
  - Syringe issue [Unknown]
  - Hip fracture [Recovering/Resolving]
  - Failure to thrive [Unknown]
  - Gout [Unknown]
  - Wrist fracture [Unknown]
  - Blood pressure decreased [Not Recovered/Not Resolved]
  - Blood pressure increased [Unknown]
  - Injection site pain [Unknown]
  - Weight decreased [Unknown]
  - Emotional distress [Recovering/Resolving]
  - Pain [Unknown]
  - Feeling abnormal [Unknown]
  - Skin abrasion [Unknown]
  - Diarrhoea [Not Recovered/Not Resolved]
  - Contusion [Unknown]
  - Confusional state [Not Recovered/Not Resolved]
  - Death [Fatal]
  - Intervertebral disc degeneration [Unknown]
  - Oedema peripheral [Unknown]
  - Urinary tract infection [Recovered/Resolved]
  - Stress [Unknown]
  - Memory impairment [Unknown]
  - Injection site haemorrhage [Recovered/Resolved]
  - Decreased appetite [Unknown]
  - Bronchitis [Unknown]
  - Biliary tract infection [Unknown]
  - Palpitations [Unknown]
  - Cognitive disorder [Unknown]
  - Restless legs syndrome [Unknown]
  - Tremor [Unknown]
  - Nasopharyngitis [Unknown]
  - Hallucination [Not Recovered/Not Resolved]
  - Aggression [Unknown]
  - Wrong technique in product usage process [Unknown]
  - Upper limb fracture [Unknown]
  - Syncope [Unknown]
  - Dementia [Unknown]
  - Muscular weakness [Not Recovered/Not Resolved]
  - Pallor [Recovering/Resolving]
  - Mood altered [Unknown]
  - Renal disorder [Unknown]
  - Asthenia [Unknown]
  - Loss of consciousness [Unknown]
  - Lower respiratory tract infection [Unknown]
  - Fall [Unknown]
  - Lip dry [Unknown]

NARRATIVE: CASE EVENT DATE: 20120227
